FAERS Safety Report 18344474 (Version 2)
Quarter: 2020Q4

REPORT INFORMATION
  Report Type: Report from Study
  Country: US (occurrence: US)
  Receive Date: 20201005
  Receipt Date: 20201020
  Transmission Date: 20210114
  Serious: Yes (Hospitalization)
  Sender: FDA-Public Use
  Company Number: US-EISAI MEDICAL RESEARCH-EC-2015-009796

PATIENT
  Age: 50 Year
  Sex: Female
  Weight: 60 kg

DRUGS (25)
  1. ATENOLOL. [Concomitant]
     Active Substance: ATENOLOL
  2. LISINOPRIL. [Concomitant]
     Active Substance: LISINOPRIL
  3. GABAPENTIN. [Concomitant]
     Active Substance: GABAPENTIN
  4. LENVIMA [Suspect]
     Active Substance: LENVATINIB
     Route: 048
     Dates: end: 20190906
  5. GABAPENTIN. [Concomitant]
     Active Substance: GABAPENTIN
  6. COREG [Concomitant]
     Active Substance: CARVEDILOL
  7. LENVIMA [Suspect]
     Active Substance: LENVATINIB
     Route: 048
     Dates: start: 2019, end: 202006
  8. PREMARIN [Concomitant]
     Active Substance: ESTROGENS, CONJUGATED
  9. LENVIMA [Suspect]
     Active Substance: LENVATINIB
     Dosage: 10MG DAILY FOR 2 DAY THEN 14MG DAILY THEN 10MG DAILY FOR 2 DAYS THEN 16MG DAILY
     Route: 048
     Dates: start: 201804
  10. GOODYS EXTRA STRENGTH [Concomitant]
     Active Substance: ACETAMINOPHEN\ASPIRIN\CAFFEINE
  11. COREG [Concomitant]
     Active Substance: CARVEDILOL
  12. MEGESTROL [Concomitant]
     Active Substance: MEGESTROL
  13. LENVIMA [Suspect]
     Active Substance: LENVATINIB
     Indication: THYROID CANCER
     Route: 048
     Dates: start: 20150415, end: 201601
  14. LENVIMA [Suspect]
     Active Substance: LENVATINIB
     Route: 048
     Dates: start: 202006, end: 20200928
  15. LENVIMA [Suspect]
     Active Substance: LENVATINIB
     Dosage: 10MG DAILY FOR 2 DAY THEN 14MG THEN 10MG DAILY FOR 2 DAYS THEN 16MG THEN REPEAT
     Route: 048
     Dates: end: 201804
  16. LEVOTHYROXINE. [Concomitant]
     Active Substance: LEVOTHYROXINE
  17. SYNTHROID [Concomitant]
     Active Substance: LEVOTHYROXINE SODIUM
  18. LENVIMA [Suspect]
     Active Substance: LENVATINIB
     Route: 048
     Dates: start: 2017
  19. LENVIMA [Suspect]
     Active Substance: LENVATINIB
     Route: 048
     Dates: start: 20190910, end: 2019
  20. LENVIMA [Suspect]
     Active Substance: LENVATINIB
     Route: 048
     Dates: start: 20160121, end: 201604
  21. LENVIMA [Suspect]
     Active Substance: LENVATINIB
     Route: 048
     Dates: start: 2016, end: 20161111
  22. LENVIMA [Suspect]
     Active Substance: LENVATINIB
     Route: 048
     Dates: start: 20161121, end: 201704
  23. CALCIUM [Concomitant]
     Active Substance: CALCIUM
  24. ENALAPRIL [Concomitant]
     Active Substance: ENALAPRIL
  25. OMEPRAZOLE-SODIUM BICARBONATE [Concomitant]
     Active Substance: OMEPRAZOLE\SODIUM BICARBONATE

REACTIONS (21)
  - Rash [Unknown]
  - Appetite disorder [Recovering/Resolving]
  - Candida infection [Not Recovered/Not Resolved]
  - Diarrhoea [Not Recovered/Not Resolved]
  - Thyroglobulin decreased [Recovering/Resolving]
  - Pyrexia [Recovered/Resolved]
  - Weight decreased [Not Recovered/Not Resolved]
  - Eye disorder [Unknown]
  - Blood pressure increased [Unknown]
  - Nausea [Unknown]
  - Metastases to spine [Recovering/Resolving]
  - Bacterial infection [Recovering/Resolving]
  - Faeces discoloured [Not Recovered/Not Resolved]
  - Skin ulcer [Unknown]
  - Sinusitis [Recovered/Resolved]
  - Pathological fracture [Recovering/Resolving]
  - Dyspepsia [Not Recovered/Not Resolved]
  - Feeding disorder [Not Recovered/Not Resolved]
  - Feeling abnormal [Not Recovered/Not Resolved]
  - Dehydration [Unknown]
  - Abdominal discomfort [Not Recovered/Not Resolved]

NARRATIVE: CASE EVENT DATE: 201508
